FAERS Safety Report 7641667-4 (Version None)
Quarter: 2011Q3

REPORT INFORMATION
  Report Type: 
  Country: None (occurrence: None)
  Receive Date: 20110728
  Receipt Date: 20110725
  Transmission Date: 20111222
  Serious: Yes (Hospitalization)
  Sender: FDA-Public Use
  Company Number: CA-GLAXOSMITHKLINE-A0938065A

PATIENT
  Sex: Female
  Weight: 50 kg

DRUGS (1)
  1. ADVAIR DISKUS 100/50 [Suspect]
     Indication: BRONCHIECTASIS
     Dosage: 1PUFF TWICE PER DAY
     Route: 055
     Dates: start: 20060101

REACTIONS (6)
  - SYNCOPE [None]
  - GLAUCOMA [None]
  - JOINT INJURY [None]
  - EXCORIATION [None]
  - INJURY [None]
  - FALL [None]
